FAERS Safety Report 7320473-4 (Version None)
Quarter: 2011Q1

REPORT INFORMATION
  Report Type: 
  Country: None (occurrence: None)
  Receive Date: 20110228
  Receipt Date: 20110224
  Transmission Date: 20110831
  Serious: Yes (Other)
  Sender: FDA-Public Use
  Company Number: B0701904A

PATIENT
  Age: 52 Year
  Sex: Female
  Weight: 60 kg

DRUGS (2)
  1. PROGYNOVA [Concomitant]
     Indication: MENOPAUSE
     Route: 048
     Dates: start: 20090223
  2. MALARONE [Suspect]
     Indication: MALARIA PROPHYLAXIS
     Dosage: 1IUAX PER DAY
     Route: 048
     Dates: start: 20101017, end: 20101018

REACTIONS (4)
  - SWELLING FACE [None]
  - DYSPNOEA [None]
  - URTICARIA [None]
  - RASH [None]
